FAERS Safety Report 14591023 (Version 1)
Quarter: 2018Q1

REPORT INFORMATION
  Report Type: Spontaneous
  Country: US (occurrence: US)
  Receive Date: 20180301
  Receipt Date: 20180301
  Transmission Date: 20180509
  Serious: Yes (Hospitalization)
  Sender: FDA-Public Use
  Company Number: None

PATIENT
  Sex: Female

DRUGS (14)
  1. NEORAL [Suspect]
     Active Substance: CYCLOSPORINE
     Indication: TRANSPLANT
     Route: 048
     Dates: start: 20161012
  2. OMEPRAZOLE. [Concomitant]
     Active Substance: OMEPRAZOLE
  3. LOSARTAN. [Concomitant]
     Active Substance: LOSARTAN
  4. CELLCEPT [Suspect]
     Active Substance: MYCOPHENOLATE MOFETIL\MYCOPHENOLATE MOFETIL HYDROCHLORIDE
     Indication: TRANSPLANT
     Route: 048
     Dates: start: 20161213
  5. VITAMIN D3 [Concomitant]
     Active Substance: CHOLECALCIFEROL
  6. BENZL PEROX LIQ 4.5-10% [Concomitant]
  7. LOSARTAN. [Concomitant]
     Active Substance: LOSARTAN
  8. PRAVASTATIN. [Concomitant]
     Active Substance: PRAVASTATIN
  9. MAGOX [Concomitant]
  10. PREDNISONE. [Concomitant]
     Active Substance: PREDNISONE
  11. AMITRIPTYLIN [Concomitant]
     Active Substance: AMITRIPTYLINE
  12. CIPROFLOXACN [Concomitant]
     Active Substance: CIPROFLOXACIN
  13. SOD BICARB INJ 8.4% [Concomitant]
  14. ACZONE [Concomitant]
     Active Substance: DAPSONE

REACTIONS (1)
  - Infection [None]
